FAERS Safety Report 6358281-3 (Version None)
Quarter: 2009Q3

REPORT INFORMATION
  Report Type: 
  Country: None (occurrence: None)
  Receive Date: 20090911
  Receipt Date: 20090902
  Transmission Date: 20100115
  Serious: Yes (Other)
  Sender: FDA-Public Use
  Company Number: 230048J09BRA

PATIENT
  Age: 50 Year
  Sex: Female

DRUGS (5)
  1. REBIF [Suspect]
     Indication: RELAPSING-REMITTING MULTIPLE SCLEROSIS
     Dosage: 44 MCG, 3 IN 1 WEEKS
     Dates: start: 20050501
  2. AMITRIL (AMITRIPTYLINE HYDROCHLORIDE) [Concomitant]
  3. RIVOTRIL (CLONAZEPAM) [Concomitant]
  4. PROPANOLOL (PROPRANOLOL /00030001/) [Concomitant]
  5. TYLENOL [Concomitant]

REACTIONS (3)
  - INAPPROPRIATE SCHEDULE OF DRUG ADMINISTRATION [None]
  - INTRAOCULAR PRESSURE INCREASED [None]
  - OPTIC ISCHAEMIC NEUROPATHY [None]
